FAERS Safety Report 20994172 (Version 1)
Quarter: 2022Q2

REPORT INFORMATION
  Report Type: Spontaneous
  Country: FR (occurrence: FR)
  Receive Date: 20220622
  Receipt Date: 20220622
  Transmission Date: 20220721
  Serious: Yes (Life-Threatening, Other)
  Sender: FDA-Public Use
  Company Number: FR-MYLANLABS-2022M1046475

PATIENT
  Age: 67 Year
  Sex: Female

DRUGS (1)
  1. SULFAMYLON [Suspect]
     Active Substance: MAFENIDE ACETATE
     Indication: Staphylococcal skin infection
     Dosage: 1 LITER, QD

REACTIONS (3)
  - Anaphylactic reaction [Unknown]
  - Cardiogenic shock [Recovered/Resolved]
  - Malaise [Unknown]
